FAERS Safety Report 17407096 (Version 3)
Quarter: 2020Q2

REPORT INFORMATION
  Report Type: Spontaneous
  Country: HR (occurrence: HR)
  Receive Date: 20200212
  Receipt Date: 20200504
  Transmission Date: 20200713
  Serious: Yes (Death, Life-Threatening, Hospitalization, Disabling, Other)
  Sender: FDA-Public Use
  Company Number: HR-ACCORD-172150

PATIENT
  Age: 40 Year
  Sex: Female

DRUGS (32)
  1. AZACITIDINE. [Suspect]
     Active Substance: AZACITIDINE
     Indication: ACUTE MYELOID LEUKAEMIA
  2. METILDIGOXIN [Concomitant]
     Active Substance: METILDIGOXIN
  3. DOXIL [Suspect]
     Active Substance: DOXORUBICIN HYDROCHLORIDE
     Indication: PRODUCT USED FOR UNKNOWN INDICATION
     Route: 042
  4. CONTROLOC [Concomitant]
     Active Substance: PANTOPRAZOLE SODIUM
  5. BELODERM [Concomitant]
     Active Substance: BETAMETHASONE DIPROPIONATE
  6. DIFLAMM [Concomitant]
  7. CYCLOPHOSPHAMIDE. [Suspect]
     Active Substance: CYCLOPHOSPHAMIDE
     Indication: DIFFUSE LARGE B-CELL LYMPHOMA STAGE IV
  8. ACICLOVIR [Concomitant]
     Active Substance: ACYCLOVIR
     Indication: PROPHYLAXIS
  9. DOLOKAIN [Concomitant]
  10. CIPROFLOXACIN. [Suspect]
     Active Substance: CIPROFLOXACIN
     Indication: PROPHYLAXIS
  11. VINCRISTINE [Suspect]
     Active Substance: VINCRISTINE
     Indication: DIFFUSE LARGE B-CELL LYMPHOMA STAGE IV
  12. RITUXIMAB. [Suspect]
     Active Substance: RITUXIMAB
     Indication: DIFFUSE LARGE B-CELL LYMPHOMA STAGE IV
  13. CARVEDILOL. [Concomitant]
     Active Substance: CARVEDILOL
  14. ALDACTONE [Concomitant]
     Active Substance: SPIRONOLACTONE
  15. METHYLPREDNISOLONE. [Suspect]
     Active Substance: METHYLPREDNISOLONE
     Indication: DIFFUSE LARGE B-CELL LYMPHOMA STAGE IV
  16. ETOPOSIDE. [Suspect]
     Active Substance: ETOPOSIDE
     Indication: DIFFUSE LARGE B-CELL LYMPHOMA STAGE IV
  17. VINBLASTINE [Suspect]
     Active Substance: VINBLASTINE
     Indication: DIFFUSE LARGE B-CELL LYMPHOMA STAGE IV
  18. ENOXOLONE/HYALURONATE SODIUM/POLYVIDONE [Concomitant]
  19. METHYLPREDNISOLONE. [Suspect]
     Active Substance: METHYLPREDNISOLONE
     Indication: DIFFUSE LARGE B-CELL LYMPHOMA STAGE IV
  20. TIOGUANINE [Suspect]
     Active Substance: THIOGUANINE ANHYDROUS
     Indication: REFRACTORY ANAEMIA WITH AN EXCESS OF BLASTS
  21. DIFLUCAN [Concomitant]
     Active Substance: FLUCONAZOLE
     Indication: PROPHYLAXIS
  22. ETOPOSIDE. [Suspect]
     Active Substance: ETOPOSIDE
     Indication: DIFFUSE LARGE B-CELL LYMPHOMA STAGE IV
  23. CYCLOPHOSPHAMIDE/CYCLOPHOSPHAMIDE MONOHYDRATE [Suspect]
     Active Substance: CYCLOPHOSPHAMIDE
     Indication: DIFFUSE LARGE B-CELL LYMPHOMA STAGE IV
  24. DOXORUBICIN [Suspect]
     Active Substance: DOXORUBICIN
     Indication: DIFFUSE LARGE B-CELL LYMPHOMA STAGE IV
  25. ACICLOVIR [Suspect]
     Active Substance: ACYCLOVIR
     Indication: ANTIBIOTIC PROPHYLAXIS
  26. FUROSEMIDE. [Concomitant]
     Active Substance: FUROSEMIDE
  27. RITUXIMAB. [Suspect]
     Active Substance: RITUXIMAB
     Indication: DIFFUSE LARGE B-CELL LYMPHOMA STAGE IV
  28. CYCLOPHOSPHAMIDE. [Suspect]
     Active Substance: CYCLOPHOSPHAMIDE
     Indication: PRODUCT USED FOR UNKNOWN INDICATION
     Dosage: STRENGTH: 1000 MG
  29. FLUCONAZOLE. [Suspect]
     Active Substance: FLUCONAZOLE
     Indication: ANTIBIOTIC PROPHYLAXIS
  30. CURASEPT [Concomitant]
     Dosage: MOUTHWASH THREE TIMES A DAY
  31. TRITACE [Concomitant]
     Active Substance: RAMIPRIL
  32. DOXORUBICIN [Suspect]
     Active Substance: DOXORUBICIN
     Indication: DIFFUSE LARGE B-CELL LYMPHOMA STAGE IV

REACTIONS (16)
  - Myelodysplastic syndrome [Unknown]
  - Stenotrophomonas infection [Unknown]
  - Gingival ulceration [Not Recovered/Not Resolved]
  - Mouth ulceration [Unknown]
  - Toxicity to various agents [Unknown]
  - Pancytopenia [Unknown]
  - Neutropenia [Unknown]
  - Sinusitis [Fatal]
  - Aspergillus infection [Fatal]
  - Leukaemia [Unknown]
  - Enterococcal infection [Unknown]
  - Toxic neuropathy [Unknown]
  - Congestive cardiomyopathy [Unknown]
  - Acute myeloid leukaemia [Unknown]
  - Staphylococcal sepsis [Fatal]
  - Thrombocytopenia [Unknown]
